FAERS Safety Report 7865719-9 (Version None)
Quarter: 2011Q4

REPORT INFORMATION
  Report Type: 
  Country: None (occurrence: None)
  Receive Date: 20111028
  Receipt Date: 20110214
  Transmission Date: 20120403
  Serious: No
  Sender: FDA-Public Use
  Company Number: US-GLAXOSMITHKLINE-A0913424A

PATIENT
  Age: 61 Year
  Sex: Female
  Weight: 125 kg

DRUGS (5)
  1. CRESTOR [Concomitant]
  2. DILANTIN [Concomitant]
  3. DIOVAN [Concomitant]
  4. ADVAIR DISKUS 100/50 [Suspect]
     Indication: CHRONIC OBSTRUCTIVE PULMONARY DISEASE
     Dosage: 1PUFF TWICE PER DAY
     Route: 055
     Dates: start: 20101101
  5. LOPID [Concomitant]

REACTIONS (3)
  - DRUG ADMINISTRATION ERROR [None]
  - ORAL PAIN [None]
  - GINGIVAL BLEEDING [None]
